FAERS Safety Report 10197699 (Version 1)
Quarter: 2014Q2

REPORT INFORMATION
  Report Type: Spontaneous
  Country: US (occurrence: US)
  Receive Date: 20140527
  Receipt Date: 20140527
  Transmission Date: 20141212
  Serious: No
  Sender: FDA-Public Use
  Company Number: US-BRISTOL-MYERS SQUIBB COMPANY-19105972

PATIENT
  Age: 63 Year
  Sex: Female

DRUGS (4)
  1. PRAVACHOL [Suspect]
     Indication: LIPIDS INCREASED
     Route: 048
  2. SIMVASTATIN [Suspect]
     Indication: LIPIDS INCREASED
     Route: 048
  3. VENLAFAXINE HCL [Suspect]
  4. MEDROXYPROGESTERONE ACETATE [Suspect]
     Indication: MENOPAUSE
     Route: 048
     Dates: start: 2004

REACTIONS (2)
  - Hypersensitivity [Unknown]
  - Myalgia [Recovered/Resolved]
